FAERS Safety Report 24761264 (Version 1)
Quarter: 2024Q4

REPORT INFORMATION
  Report Type: Spontaneous
  Country: CO (occurrence: CO)
  Receive Date: 20241220
  Receipt Date: 20241220
  Transmission Date: 20250114
  Serious: Yes (Hospitalization, Other)
  Sender: NOVO NORDISK
  Company Number: CO-NOVOPROD-1335396

PATIENT
  Age: 66 Year
  Sex: Female
  Weight: 92 kg

DRUGS (3)
  1. NOVORAPID [Suspect]
     Active Substance: INSULIN ASPART
     Indication: Type 2 diabetes mellitus
     Dosage: 30 IU, QD
     Route: 058
     Dates: start: 201601
  2. TRESIBA [Suspect]
     Active Substance: INSULIN DEGLUDEC
     Indication: Type 2 diabetes mellitus
     Dosage: 30 IU, QD
     Route: 058
     Dates: end: 20241015
  3. CHOLECALCIFEROL [Concomitant]
     Active Substance: CHOLECALCIFEROL
     Indication: Vitamin D decreased
     Dosage: UNK
     Route: 048

REACTIONS (1)
  - Umbilical hernia [Recovered/Resolved]

NARRATIVE: CASE EVENT DATE: 20170101
